FAERS Safety Report 8905387 (Version 1)
Quarter: 2012Q4

REPORT INFORMATION
  Report Type: 
  Country: US (occurrence: US)
  Receive Date: 20121112
  Receipt Date: 20121112
  Transmission Date: 20130627
  Serious: No
  Sender: FDA-Public Use
  Company Number: US-009507513-1211USA003962

PATIENT
  Age: 84 Year
  Sex: Male

DRUGS (2)
  1. JANUVIA [Suspect]
     Indication: TYPE 2 DIABETES MELLITUS
     Dosage: UNK
     Route: 048
  2. GLYBURIDE [Concomitant]
     Dosage: UNK

REACTIONS (2)
  - Hypoglycaemia [Unknown]
  - Wrong technique in drug usage process [Unknown]
